FAERS Safety Report 24005335 (Version 1)
Quarter: 2024Q2

REPORT INFORMATION
  Report Type: Spontaneous
  Country: US (occurrence: None)
  Receive Date: 20240623
  Receipt Date: 20240623
  Transmission Date: 20240715
  Serious: Yes (Hospitalization)
  Sender: FDA-Public Use
  Company Number: None

PATIENT
  Sex: Male

DRUGS (1)
  1. HERBALS\MUSHROOMS UNSPECIFIED [Suspect]
     Active Substance: HERBALS\MUSHROOMS UNSPECIFIED
     Indication: Feeling of relaxation
     Dosage: ORAL
     Route: 048

REACTIONS (6)
  - Substance use [None]
  - Seizure [None]
  - Hallucination [None]
  - Vomiting [None]
  - Heart rate increased [None]
  - Loss of consciousness [None]

NARRATIVE: CASE EVENT DATE: 20240419
